FAERS Safety Report 23995668 (Version 3)
Quarter: 2024Q3

REPORT INFORMATION
  Report Type: Spontaneous
  Country: US (occurrence: US)
  Receive Date: 20240620
  Receipt Date: 20240711
  Transmission Date: 20241017
  Serious: Yes (Other)
  Sender: CSL BEHRING
  Company Number: US-BEH-2024173152

PATIENT
  Age: 68 Year
  Sex: Female

DRUGS (8)
  1. PRIVIGEN [Suspect]
     Active Substance: HUMAN IMMUNOGLOBULIN G
     Indication: Immunodeficiency common variable
     Dosage: 42 G, QMT
     Route: 042
     Dates: start: 201509
  2. TELMISARTAN [Concomitant]
     Active Substance: TELMISARTAN
  3. NEXIUM [Concomitant]
     Active Substance: ESOMEPRAZOLE MAGNESIUM
  4. PYRIDOSTIGMINE [Concomitant]
     Active Substance: PYRIDOSTIGMINE
  5. VITAMIN B12 [Concomitant]
     Active Substance: CYANOCOBALAMIN
  6. SPIRONOLACTONE [Concomitant]
     Active Substance: SPIRONOLACTONE
  7. VITAMIN D [Concomitant]
     Active Substance: VITAMIN D NOS
  8. EVOLOCUMAB [Concomitant]
     Active Substance: EVOLOCUMAB

REACTIONS (4)
  - Suspected transmission of an infectious agent via product [Unknown]
  - Hepatitis B core antibody positive [Not Recovered/Not Resolved]
  - Hepatitis B surface antibody positive [Unknown]
  - Liver function test increased [Unknown]

NARRATIVE: CASE EVENT DATE: 20240514
